FAERS Safety Report 9321911 (Version 5)
Quarter: 2013Q4

REPORT INFORMATION
  Report Type: Spontaneous
  Country: US (occurrence: US)
  Receive Date: 20130531
  Receipt Date: 20131107
  Transmission Date: 20140711
  Serious: Yes (Hospitalization, Congenital Anomaly, Other)
  Sender: FDA-Public Use
  Company Number: US-PFIZER INC-2013164411

PATIENT
  Sex: Female
  Weight: 2.43 kg

DRUGS (2)
  1. ZOLOFT [Suspect]
     Dosage: UNK
     Route: 064
     Dates: start: 200605
  2. ZOLOFT [Suspect]
     Dosage: UNK
     Route: 064
     Dates: start: 20021204

REACTIONS (7)
  - Maternal exposure during pregnancy [Unknown]
  - Encephalocele [Unknown]
  - Spina bifida [Unknown]
  - Congenital hydrocephalus [Unknown]
  - Meningomyelocele [Unknown]
  - Cardiac murmur [Unknown]
  - Renal fusion anomaly [Unknown]
